FAERS Safety Report 9690521 (Version 3)
Quarter: 2014Q1

REPORT INFORMATION
  Report Type: Spontaneous
  Country: JP (occurrence: None)
  Receive Date: 20131113
  Receipt Date: 20140221
  Transmission Date: 20141002
  Serious: Yes (Hospitalization)
  Sender: FDA-Public Use
  Company Number: JP-013545

PATIENT
  Age: 78 Year
  Sex: Male

DRUGS (4)
  1. DEGARELIX (GONAX) 120 MG [Suspect]
     Indication: PROSTATE CANCER
     Route: 058
     Dates: start: 20131024, end: 20131024
  2. TOVIAZ [Concomitant]
  3. MEMARY [Concomitant]
  4. RIVASTACH [Concomitant]

REACTIONS (4)
  - Sepsis [None]
  - Activities of daily living impaired [None]
  - Urinary tract infection bacterial [None]
  - Proteus infection [None]
